FAERS Safety Report 17063414 (Version 2)
Quarter: 2019Q4

REPORT INFORMATION
  Report Type: Spontaneous
  Country: US (occurrence: US)
  Receive Date: 20191122
  Receipt Date: 20191220
  Transmission Date: 20200122
  Serious: Yes (Hospitalization, Other)
  Sender: FDA-Public Use
  Company Number: NVSC2019US043329

PATIENT
  Age: 47 Year
  Sex: Female
  Weight: 116.5 kg

DRUGS (4)
  1. PIQRAY [Suspect]
     Active Substance: ALPELISIB
     Indication: BREAST CANCER METASTATIC
     Dosage: 300 MG, QD
     Route: 048
     Dates: start: 20190921, end: 20191025
  2. PROZAC DURAPAC [Concomitant]
     Indication: AFFECTIVE DISORDER
     Dosage: 20 MG, QD
     Route: 048
     Dates: start: 20190904
  3. CLARITIN [Concomitant]
     Active Substance: LORATADINE
     Indication: HYPERSENSITIVITY
     Dosage: 10 MG, QD
     Route: 048
     Dates: start: 20190815
  4. DYAZIDE [Concomitant]
     Active Substance: HYDROCHLOROTHIAZIDE\TRIAMTERENE
     Indication: SWELLING
     Dosage: 37.5/25 1-2 QD PRN
     Route: 065
     Dates: start: 20190822

REACTIONS (7)
  - Peripheral swelling [Unknown]
  - Cardiac tamponade [Recovering/Resolving]
  - Dyspnoea [Unknown]
  - Fatigue [Unknown]
  - Blood creatinine increased [Recovered/Resolved]
  - Pericardial effusion [Unknown]
  - Malaise [Unknown]

NARRATIVE: CASE EVENT DATE: 20191003
